FAERS Safety Report 4359188-3 (Version None)
Quarter: 2004Q2

REPORT INFORMATION
  Report Type: 
  Country: None (occurrence: None)
  Receive Date: 20040512
  Receipt Date: 20040430
  Transmission Date: 20050107
  Serious: Yes (Other)
  Sender: FDA-Public Use
  Company Number: JP-JNJFOC-20040403229

PATIENT
  Age: 43 Year
  Sex: Male
  Weight: 42.9 kg

DRUGS (4)
  1. REMICADE  (INFLIXIMAB, RECOMBINANT) LYOPHILIZED POWDER [Suspect]
     Indication: RHEUMATOID ARTHRITIS
     Dates: start: 20031212, end: 20031212
  2. REMICADE  (INFLIXIMAB, RECOMBINANT) LYOPHILIZED POWDER [Suspect]
     Indication: RHEUMATOID ARTHRITIS
     Dates: start: 20040413, end: 20040413
  3. METHOTREXATE [Concomitant]
  4. INH (ISONIAZID) UNKNOWN [Concomitant]

REACTIONS (6)
  - ABSCESS [None]
  - CUSHINGOID [None]
  - INFUSION RELATED REACTION [None]
  - PYREXIA [None]
  - URTICARIA [None]
  - VOMITING [None]
